FAERS Safety Report 8193174-0 (Version None)
Quarter: 2012Q1

REPORT INFORMATION
  Report Type: 
  Country: None (occurrence: None)
  Receive Date: 20120221
  Receipt Date: 20111107
  Transmission Date: 20120608
  Serious: No
  Sender: FDA-Public Use
  Company Number: 037447

PATIENT
  Sex: Male
  Weight: 64.9 kg

DRUGS (3)
  1. LACOSAMIDE [Suspect]
     Dosage: (200 MG BID)
     Dates: start: 20100101
  2. UNIPARIN /00027704/ [Concomitant]
  3. IBUPROFEN [Concomitant]

REACTIONS (1)
  - THROMBOCYTOPENIA [None]
